FAERS Safety Report 24277312 (Version 2)
Quarter: 2024Q3

REPORT INFORMATION
  Report Type: Spontaneous
  Country: US (occurrence: US)
  Receive Date: 20240903
  Receipt Date: 20240904
  Transmission Date: 20241016
  Serious: Yes (Life-Threatening)
  Sender: PFIZER
  Company Number: US-PFIZER INC-PV202400112702

PATIENT
  Age: 66 Year
  Sex: Male

DRUGS (4)
  1. VANCOMYCIN HYDROCHLORIDE [Suspect]
     Active Substance: VANCOMYCIN HYDROCHLORIDE
     Indication: Evidence based treatment
     Dosage: UNK
  2. MEROPENEM [Suspect]
     Active Substance: MEROPENEM
     Indication: Evidence based treatment
     Dosage: UNK
  3. FLUCONAZOLE [Suspect]
     Active Substance: FLUCONAZOLE
     Indication: Evidence based treatment
     Dosage: UNK
  4. ATOVAQUONE [Suspect]
     Active Substance: ATOVAQUONE
     Indication: Evidence based treatment
     Dosage: UNK

REACTIONS (2)
  - Drug ineffective [Unknown]
  - Multiple organ dysfunction syndrome [Unknown]
